FAERS Safety Report 6472906-3 (Version None)
Quarter: 2009Q4

REPORT INFORMATION
  Report Type: 
  Country: None (occurrence: None)
  Receive Date: 20091203
  Receipt Date: 20090406
  Transmission Date: 20100525
  Serious: No
  Sender: FDA-Public Use
  Company Number: US-AMGEN-KDL325157

PATIENT
  Sex: Female

DRUGS (18)
  1. ENBREL [Suspect]
     Indication: RHEUMATOID ARTHRITIS
     Route: 058
     Dates: start: 20060112
  2. WYTENSIN [Concomitant]
  3. TRANXENE [Concomitant]
  4. SYNTHROID [Concomitant]
  5. FOLIC ACID [Concomitant]
  6. CALCIUM CARBONATE [Concomitant]
  7. VITAMIN D [Concomitant]
  8. MAGNESIUM [Concomitant]
  9. VITAMIN E [Concomitant]
  10. ASCORBIC ACID [Concomitant]
  11. FLAX SEED OIL [Concomitant]
  12. BETAMETHASONE VALERATE [Concomitant]
     Route: 061
  13. ALPRAZOLAM [Concomitant]
  14. VALIUM [Concomitant]
  15. TRIAMCINOLONE [Concomitant]
  16. PREDNISONE [Concomitant]
  17. METHOTREXATE [Concomitant]
     Route: 048
  18. SOMA [Concomitant]

REACTIONS (5)
  - ARTHRALGIA [None]
  - BREAST PAIN [None]
  - DIARRHOEA [None]
  - JOINT STIFFNESS [None]
  - OSTEOPENIA [None]
